FAERS Safety Report 9561217 (Version 1)
Quarter: 2013Q3

REPORT INFORMATION
  Report Type: Spontaneous
  Country: US (occurrence: None)
  Receive Date: 20130821
  Receipt Date: 20130821
  Transmission Date: 20140515
  Serious: No
  Sender: FDA-Public Use
  Company Number: 1000045165

PATIENT
  Age: 78 Year
  Sex: Male

DRUGS (11)
  1. TUDORZA PRESSAIR (ACLIDINIUM BROMIDE) (400 MICROGRAM, POWDER) [Suspect]
     Indication: CHRONIC OBSTRUCTIVE PULMONARY DISEASE
     Route: 055
     Dates: start: 20130508
  2. LEVOTHYROXINE (LEVOTHYROXINE SODIUM) [Concomitant]
  3. METOPROLOL (METOPROLOL) [Concomitant]
  4. LOSARTAN (LOSARTAN) [Concomitant]
  5. FINASTERIDER (FINASTERIDE) [Concomitant]
  6. ASPIRIN (ACETYLSALICYLIC ACID) [Concomitant]
  7. SYMBICORT [Concomitant]
  8. PRAVASTATIN (PRAVASTATIN) [Concomitant]
  9. TERAZOSIN (TERAZOSIN) [Concomitant]
  10. OXYBUTYNIN (OXYBUTYNIN) [Concomitant]
  11. ALBUTEROL (ALBUTEROL) [Concomitant]

REACTIONS (1)
  - Cough [None]
